FAERS Safety Report 25734968 (Version 1)
Quarter: 2025Q3

REPORT INFORMATION
  Report Type: Spontaneous
  Country: CH (occurrence: CH)
  Receive Date: 20250828
  Receipt Date: 20250828
  Transmission Date: 20251021
  Serious: Yes (Other)
  Sender: RADIUS PHARM
  Company Number: CH-RADIUS HEALTH INC.-CH-RADIUS-25052926

PATIENT
  Age: 66 Year
  Sex: Female

DRUGS (2)
  1. TYMLOS [Suspect]
     Active Substance: ABALOPARATIDE
     Indication: Product used for unknown indication
     Dosage: 80 MICROGRAM, QD
     Route: 065
     Dates: start: 20250805, end: 202508
  2. TYMLOS [Suspect]
     Active Substance: ABALOPARATIDE
     Dosage: 10 MICROGRAM, QD
     Route: 065
     Dates: start: 202508, end: 20250816

REACTIONS (5)
  - Anal incontinence [Recovered/Resolved]
  - Abdominal distension [Recovered/Resolved]
  - Abdominal pain [Recovered/Resolved]
  - Constipation [Recovered/Resolved]
  - Diarrhoea [Recovered/Resolved]

NARRATIVE: CASE EVENT DATE: 20250801
